FAERS Safety Report 9667793 (Version 4)
Quarter: 2014Q3

REPORT INFORMATION
  Report Type: Spontaneous
  Country: SE (occurrence: SE)
  Receive Date: 20131104
  Receipt Date: 20140707
  Transmission Date: 20150326
  Serious: Yes (Hospitalization, Other)
  Sender: FDA-Public Use
  Company Number: SE-ELI_LILLY_AND_COMPANY-SE201310008071

PATIENT
  Age: 55 Year
  Sex: Male

DRUGS (3)
  1. DIAZEPAM. [Concomitant]
     Active Substance: DIAZEPAM
     Indication: ANXIETY
     Dosage: 2 MG, OTHER: 1-3/DAY
     Route: 065
     Dates: start: 2007
  2. ZYPADHERA [Suspect]
     Active Substance: OLANZAPINE PAMOATE
     Indication: SCHIZOAFFECTIVE DISORDER
     Dosage: 300 MG, 2/M
     Route: 030
     Dates: start: 201102
  3. ZYPADHERA [Suspect]
     Active Substance: OLANZAPINE PAMOATE
     Dosage: 405 MG, 2/M
     Route: 030
     Dates: start: 201301

REACTIONS (9)
  - Cold sweat [Recovered/Resolved]
  - Stubbornness [Recovered/Resolved]
  - Overdose [Unknown]
  - Post-injection delirium sedation syndrome [Unknown]
  - Aspiration [Recovered/Resolved]
  - Slow speech [Recovered/Resolved]
  - Dizziness [Recovered/Resolved]
  - Fatigue [Recovered/Resolved]
  - Slow response to stimuli [Recovered/Resolved]

NARRATIVE: CASE EVENT DATE: 2012
